FAERS Safety Report 9344276 (Version 1)
Quarter: 2013Q2

REPORT INFORMATION
  Report Type: Spontaneous
  Country: US (occurrence: None)
  Receive Date: 20130610
  Receipt Date: 20130610
  Transmission Date: 20140414
  Serious: Yes (Other)
  Sender: FDA-Public Use
  Company Number: 001546471A

PATIENT
  Age: 12 Year
  Sex: Female

DRUGS (1)
  1. PROACTIVE SOLUTION CLEANING BAR [Suspect]
     Indication: ACNE
     Dosage: 2X PER MONTH DERMAL?
     Dates: start: 20130312, end: 20130516

REACTIONS (5)
  - Erythema [None]
  - Swelling face [None]
  - Eye swelling [None]
  - Lip swelling [None]
  - Swelling [None]
